FAERS Safety Report 25526926 (Version 1)
Quarter: 2025Q3

REPORT INFORMATION
  Report Type: Report from Study
  Country: US (occurrence: US)
  Receive Date: 20250707
  Receipt Date: 20250707
  Transmission Date: 20251020
  Serious: Yes (Hospitalization)
  Sender: ABBVIE
  Company Number: US-ABBVIE-6207610

PATIENT
  Age: 23 Year
  Sex: Female

DRUGS (4)
  1. SKYRIZI [Suspect]
     Active Substance: RISANKIZUMAB-RZAA
     Indication: Crohn^s disease
     Dosage: FORM STRENGTH: 360MG/2.4M. WEEK 12. LAST ADMIN DATE: 2025.?DOSE FORM: SOLUTION FOR INJECTION IN C...
     Route: 058
     Dates: start: 20250214
  2. SKYRIZI [Suspect]
     Active Substance: RISANKIZUMAB-RZAA
     Dosage: FORM STRENGTH: 360MG/2.4M. DOSE FORM: SOLUTION FOR INJECTION IN CARTRIDGE
     Route: 058
     Dates: start: 2025
  3. SKYRIZI [Suspect]
     Active Substance: RISANKIZUMAB-RZAA
     Indication: Crohn^s disease
     Route: 042
     Dates: start: 20241001, end: 20241001
  4. SKYRIZI [Suspect]
     Active Substance: RISANKIZUMAB-RZAA
     Indication: Crohn^s disease
     Route: 042
     Dates: start: 202411, end: 202411

REACTIONS (9)
  - Alcohol abuse [Unknown]
  - Therapeutic response shortened [Unknown]
  - Crohn^s disease [Not Recovered/Not Resolved]
  - Incorrect dose administered [Unknown]
  - Upper respiratory tract infection [Recovering/Resolving]
  - Nasal congestion [Recovering/Resolving]
  - Sputum discoloured [Recovering/Resolving]
  - Insomnia [Unknown]
  - Flatulence [Unknown]

NARRATIVE: CASE EVENT DATE: 20240101
